FAERS Safety Report 5191506-9 (Version None)
Quarter: 2006Q4

REPORT INFORMATION
  Report Type: 
  Country: None (occurrence: None)
  Receive Date: 20061219
  Receipt Date: 20061219
  Transmission Date: 20070319
  Serious: No
  Sender: FDA-Public Use
  Company Number: None

PATIENT
  Age: 17 Year
  Sex: Male

DRUGS (1)
  1. BETAMETHASONE SODIUM PHOSPHATE AND BETAMETHASONE ACETATE [Suspect]
     Indication: UPPER RESPIRATORY TRACT INFECTION
     Dosage: 1 CC  ONCE  IM
     Route: 030
     Dates: start: 20061207

REACTIONS (3)
  - ERYTHEMA [None]
  - SWELLING [None]
  - TENDERNESS [None]
